FAERS Safety Report 16290437 (Version 1)
Quarter: 2019Q2

REPORT INFORMATION
  Report Type: Spontaneous
  Country: US (occurrence: US)
  Receive Date: 20190403
  Receipt Date: 20190403
  Transmission Date: 20190711
  Serious: Yes (Other)
  Sender: FDA-Public Use
  Company Number: None

PATIENT
  Age: 19 Year
  Sex: Female
  Weight: 89.81 kg

DRUGS (10)
  1. MAVYRET [Suspect]
     Active Substance: GLECAPREVIR\PIBRENTASVIR
     Indication: HEPATITIS C
     Dosage: 3 TABLETS ONCE DAILY BY MOUTH WITH FOOD
     Route: 048
     Dates: start: 20190320
  2. LEXAPRO [Concomitant]
     Active Substance: ESCITALOPRAM OXALATE
  3. VENTOLIN HFA [Concomitant]
     Active Substance: ALBUTEROL SULFATE
  4. WELLBUTRIN XL [Concomitant]
     Active Substance: BUPROPION HYDROCHLORIDE
  5. FERROUS SULFATE. [Concomitant]
     Active Substance: FERROUS SULFATE
  6. LAMICTAL [Concomitant]
     Active Substance: LAMOTRIGINE
  7. BREO ELLIPTA [Concomitant]
     Active Substance: FLUTICASONE FUROATE\VILANTEROL TRIFENATATE
  8. SINGULAIR [Concomitant]
     Active Substance: MONTELUKAST SODIUM
  9. PRILOSEC [Concomitant]
     Active Substance: OMEPRAZOLE MAGNESIUM
  10. VITAMIN D NOS [Concomitant]
     Active Substance: VITAMIN D NOS

REACTIONS (4)
  - Hypoaesthesia [None]
  - Pain in extremity [None]
  - Paraesthesia [None]
  - Pain [None]
